FAERS Safety Report 13393757 (Version 2)
Quarter: 2017Q2

REPORT INFORMATION
  Report Type: Other
  Country: US (occurrence: US)
  Receive Date: 20170331
  Receipt Date: 20170428
  Transmission Date: 20170830
  Serious: Yes (Other)
  Sender: FDA-Public Use
  Company Number: US-SHIRE-US201707239

PATIENT
  Age: 28 Year
  Sex: Female
  Weight: 43.99 kg

DRUGS (2)
  1. CINRYZE [Suspect]
     Active Substance: HUMAN C1-ESTERASE INHIBITOR
     Indication: PROPHYLAXIS
  2. CINRYZE [Suspect]
     Active Substance: HUMAN C1-ESTERASE INHIBITOR
     Indication: HEREDITARY ANGIOEDEMA
     Dosage: 1000 UNITS, OTHER (EVERY 3- 4 DAYS)
     Route: 042
     Dates: start: 201703

REACTIONS (6)
  - Anxiety [Unknown]
  - Infusion related reaction [Recovered/Resolved]
  - Syncope [Recovered/Resolved]
  - Underdose [Recovered/Resolved]
  - Seizure [Recovered/Resolved]
  - Maternal exposure during pregnancy [Not Recovered/Not Resolved]

NARRATIVE: CASE EVENT DATE: 201703
